FAERS Safety Report 9312224 (Version 1)
Quarter: 2013Q2

REPORT INFORMATION
  Report Type: Spontaneous
  Country: US (occurrence: US)
  Receive Date: 20130528
  Receipt Date: 20130528
  Transmission Date: 20140414
  Serious: No
  Sender: FDA-Public Use
  Company Number: US-PFIZER INC-2013160292

PATIENT
  Age: 5 Year
  Sex: Male

DRUGS (1)
  1. QUILLIVANT XR [Suspect]
     Dosage: 20 MG, UNK

REACTIONS (2)
  - Impulse-control disorder [Unknown]
  - Malaise [Unknown]
